FAERS Safety Report 7978540-8 (Version None)
Quarter: 2011Q4

REPORT INFORMATION
  Report Type: 
  Country: None (occurrence: None)
  Receive Date: 20111214
  Receipt Date: 20111206
  Transmission Date: 20120403
  Serious: Yes (Other)
  Sender: FDA-Public Use
  Company Number: AT-JNJFOC-20111204106

PATIENT

DRUGS (32)
  1. DOXORUBICIN HCL [Suspect]
     Indication: MANTLE CELL LYMPHOMA
     Dosage: CYCLE 2
     Route: 042
  2. RITUXIMAB [Suspect]
     Dosage: CYCLE 4
     Route: 065
  3. RITUXIMAB [Suspect]
     Dosage: CYCLE 3
     Route: 065
  4. RITUXIMAB [Suspect]
     Dosage: CYCLE 2
     Route: 065
  5. CYCLOPHOSPHAMIDE [Suspect]
     Dosage: CYCLE 5
     Route: 065
  6. VINCRISTINE [Suspect]
     Indication: MANTLE CELL LYMPHOMA
     Dosage: CYCLE 6
     Route: 065
  7. VINCRISTINE [Suspect]
     Dosage: CYCLE 2
     Route: 065
  8. VINCRISTINE [Suspect]
     Dosage: CYCLE 1
     Route: 065
  9. PREDNISONE [Suspect]
     Dosage: CYCLE 3
     Route: 065
  10. DOXORUBICIN HCL [Suspect]
     Dosage: CYCLE 1
     Route: 042
  11. RITUXIMAB [Suspect]
     Dosage: CYCLE 1
     Route: 065
  12. CYCLOPHOSPHAMIDE [Suspect]
     Dosage: CYCLE 1
     Route: 065
  13. DOXORUBICIN HCL [Suspect]
     Dosage: CYCLE 6
     Route: 042
  14. CYCLOPHOSPHAMIDE [Suspect]
     Dosage: CYCLE 4
     Route: 065
  15. VINCRISTINE [Suspect]
     Dosage: CYCLE 4
     Route: 065
  16. DOXORUBICIN HCL [Suspect]
     Dosage: CYCLE 3
     Route: 042
  17. CYCLOPHOSPHAMIDE [Suspect]
     Indication: MANTLE CELL LYMPHOMA
     Dosage: CYCLE 2
     Route: 065
  18. CYCLOPHOSPHAMIDE [Suspect]
     Dosage: CYCLE 6
     Route: 065
  19. CYCLOPHOSPHAMIDE [Suspect]
     Dosage: CYCLE 3
     Route: 065
  20. VINCRISTINE [Suspect]
     Dosage: CYCLE 3
     Route: 065
  21. PREDNISONE [Suspect]
     Indication: MANTLE CELL LYMPHOMA
     Dosage: CYCLE 6
     Route: 065
  22. PREDNISONE [Suspect]
     Dosage: CYCLE 2
     Route: 065
  23. THALIDOMIDE [Suspect]
     Indication: MANTLE CELL LYMPHOMA
     Route: 065
  24. DOXORUBICIN HCL [Suspect]
     Dosage: CYCLE 5
     Route: 042
  25. VINCRISTINE [Suspect]
     Dosage: CYCLE 5
     Route: 065
  26. PREDNISONE [Suspect]
     Dosage: CYCLE 4
     Route: 065
  27. DOXORUBICIN HCL [Suspect]
     Dosage: CYCLE 4
     Route: 042
  28. PREDNISONE [Suspect]
     Dosage: CYCLE 1
     Route: 065
  29. DALTEPARIN SODIUM [Concomitant]
     Indication: THROMBOSIS PROPHYLAXIS
     Route: 058
  30. RITUXIMAB [Suspect]
     Indication: MANTLE CELL LYMPHOMA
     Dosage: CYCLE 6
     Route: 065
  31. RITUXIMAB [Suspect]
     Dosage: CYCLE 5
     Route: 065
  32. PREDNISONE [Suspect]
     Dosage: CYCLE 5
     Route: 065

REACTIONS (1)
  - NEUROPATHY PERIPHERAL [None]
